FAERS Safety Report 7373665-2 (Version None)
Quarter: 2011Q1

REPORT INFORMATION
  Report Type: 
  Country: None (occurrence: None)
  Receive Date: 20110325
  Receipt Date: 20110322
  Transmission Date: 20110831
  Serious: Yes (Other)
  Sender: FDA-Public Use
  Company Number: US-BAYER-2011-021999

PATIENT
  Sex: Female

DRUGS (3)
  1. INSULIN [Concomitant]
     Indication: DIABETES MELLITUS
  2. BETASERON [Suspect]
     Indication: RELAPSING-REMITTING MULTIPLE SCLEROSIS
     Dosage: 2 MIU, QOD
     Route: 058
     Dates: start: 20110307
  3. KEPPRA [Concomitant]
     Indication: CONVULSION

REACTIONS (3)
  - RASH MACULAR [None]
  - BLOOD GLUCOSE INCREASED [None]
  - CONVULSION [None]
